FAERS Safety Report 4548336-8 (Version None)
Quarter: 2005Q1

REPORT INFORMATION
  Report Type: 
  Country: None (occurrence: None)
  Receive Date: 20050106
  Receipt Date: 20050106
  Transmission Date: 20050727
  Serious: Yes (Life-Threatening, Hospitalization)
  Sender: FDA-Public Use
  Company Number: None

PATIENT
  Age: 56 Year
  Sex: Female
  Weight: 92.9874 kg

DRUGS (1)
  1. RISPERDAL [Suspect]
     Indication: ANXIETY

REACTIONS (2)
  - BALANCE DISORDER [None]
  - FALL [None]
